FAERS Safety Report 24925610 (Version 1)
Quarter: 2025Q1

REPORT INFORMATION
  Report Type: Report from Study
  Country: MX (occurrence: MX)
  Receive Date: 20250204
  Receipt Date: 20250204
  Transmission Date: 20250408
  Serious: Yes (Other)
  Sender: ABBVIE
  Company Number: MX-JNJFOC-20241208570

PATIENT
  Age: 64 Year
  Sex: Male

DRUGS (1)
  1. IMBRUVICA [Suspect]
     Active Substance: IBRUTINIB
     Indication: Waldenstrom^s macroglobulinaemia
     Route: 048
     Dates: start: 20210803, end: 20240720

REACTIONS (4)
  - Hypoxia [Unknown]
  - Sleep apnoea syndrome [Unknown]
  - Off label use [Unknown]
  - Polycythaemia [Unknown]
